FAERS Safety Report 8536220-4 (Version None)
Quarter: 2012Q3

REPORT INFORMATION
  Report Type: 
  Country: None (occurrence: None)
  Receive Date: 20120725
  Receipt Date: 20120712
  Transmission Date: 20120928
  Serious: Yes (Other)
  Sender: FDA-Public Use
  Company Number: FR-VERTEX PHARMACEUTICALS INC.-000000000000001211

PATIENT
  Age: 70 Year
  Sex: Female
  Weight: 73 kg

DRUGS (5)
  1. INCIVO [Suspect]
     Indication: HEPATITIS C
     Dosage: DOSAGE FORM: TABLET
     Route: 065
     Dates: start: 20120419
  2. NEORECORMON [Concomitant]
     Indication: PROPHYLAXIS
     Dosage: DOSAGE FORM: UNKNOWN
     Route: 065
  3. ACETAMINOPHEN [Concomitant]
     Indication: PROPHYLAXIS
     Dosage: DOSAGE FORM: UNKNOWN
     Route: 065
  4. COPEGUS [Concomitant]
     Indication: HEPATITIS C
     Dosage: DOSAGE FORM: UNKNOWN
     Route: 048
     Dates: start: 20120419
  5. PEGASYS [Concomitant]
     Indication: HEPATITIS C
     Dosage: DOSAGE FORM: UNKNOWN
     Route: 058
     Dates: start: 20120419

REACTIONS (5)
  - WEIGHT DECREASED [None]
  - FATIGUE [None]
  - ANAEMIA [None]
  - DIARRHOEA [None]
  - DERMATITIS EXFOLIATIVE [None]
